FAERS Safety Report 4648968-2 (Version None)
Quarter: 2005Q2

REPORT INFORMATION
  Report Type: 
  Country: None (occurrence: None)
  Receive Date: 20050427
  Receipt Date: 20050415
  Transmission Date: 20051028
  Serious: Yes (Other)
  Sender: FDA-Public Use
  Company Number: 2005061283

PATIENT
  Sex: Male
  Weight: 58.9676 kg

DRUGS (4)
  1. DILANTIN KAPSEAL [Suspect]
     Indication: CONVULSION
     Dosage: 500 MG (100 MG, 1 IN 1 D), ORAL
     Route: 048
  2. ESOMEPRAZOLE (ESOMEPRAZOLE) [Concomitant]
  3. LEVETIRACETAM [Concomitant]
  4. ALPRAZOLAM [Concomitant]

REACTIONS (3)
  - CONVULSION [None]
  - HERNIA REPAIR [None]
  - THROMBOSIS [None]
